FAERS Safety Report 4643207-0 (Version None)
Quarter: 2005Q2

REPORT INFORMATION
  Report Type: 
  Country: None (occurrence: None)
  Receive Date: 20050421
  Receipt Date: 20050413
  Transmission Date: 20051028
  Serious: Yes (Hospitalization)
  Sender: FDA-Public Use
  Company Number: 26489

PATIENT
  Age: 66 Year
  Sex: Male

DRUGS (1)
  1. TAMBOCOR [Suspect]
     Dosage: 300 MG (150 MG, 2 IN 1 DAY(S)), ORAL
     Route: 048

REACTIONS (4)
  - DEHYDRATION [None]
  - DIARRHOEA [None]
  - RENAL FAILURE [None]
  - VOMITING [None]
